FAERS Safety Report 8201033-X (Version None)
Quarter: 2012Q1

REPORT INFORMATION
  Report Type: 
  Country: None (occurrence: None)
  Receive Date: 20120312
  Receipt Date: 20120302
  Transmission Date: 20120608
  Serious: Yes (Other)
  Sender: FDA-Public Use
  Company Number: US-SANOFI-AVENTIS-2012SA015045

PATIENT
  Sex: Male

DRUGS (1)
  1. PLAVIX [Suspect]
     Dates: start: 20021201, end: 20110201

REACTIONS (1)
  - BLOOD DISORDER [None]
